FAERS Safety Report 20399733 (Version 2)
Quarter: 2022Q1

REPORT INFORMATION
  Report Type: Spontaneous
  Country: US (occurrence: US)
  Receive Date: 20220131
  Receipt Date: 20220201
  Transmission Date: 20220423
  Serious: No
  Sender: FDA-Public Use
  Company Number: US-ABBVIE-21K-163-3998662-00

PATIENT
  Age: 19 Year
  Sex: Female

DRUGS (1)
  1. HUMIRA [Suspect]
     Active Substance: ADALIMUMAB
     Indication: Crohn^s disease
     Dosage: THERAPY START 1 TO 2 YEARS AGO
     Route: 058

REACTIONS (3)
  - Incorrect dose administered [Unknown]
  - Crohn^s disease [Unknown]
  - Device issue [Unknown]

NARRATIVE: CASE EVENT DATE: 20210713
